FAERS Safety Report 5269060-2 (Version None)
Quarter: 2007Q1

REPORT INFORMATION
  Report Type: 
  Country: None (occurrence: None)
  Receive Date: 20070319
  Receipt Date: 20070309
  Transmission Date: 20070707
  Serious: Yes (Hospitalization)
  Sender: FDA-Public Use
  Company Number: JP-ROCHE-482672

PATIENT
  Age: 16 Year
  Sex: Male
  Weight: 53 kg

DRUGS (9)
  1. TAMIFLU [Suspect]
     Route: 048
     Dates: start: 20070205, end: 20070205
  2. TAMIFLU [Suspect]
     Route: 048
     Dates: start: 20070206, end: 20070206
  3. CALONAL [Concomitant]
     Dosage: GENERIC DRUG NAME REPORTED AS ACETAMINOPHEN. TAKEN AS NEEDED.
     Route: 048
     Dates: start: 20070205, end: 20070205
  4. SOLITA-T3 [Concomitant]
     Dosage: ROUTE WAS REPORTED AS INTRAVENOUS (NOT OTHERWISE SPECIFIED).
     Route: 042
     Dates: start: 20070205, end: 20070206
  5. 1 CONCOMITANT DRUG [Concomitant]
     Dosage: DRUG WAS REPORTED AS BFLUID. ROUTE WAS REPORTED AS INTRAVENOUS (NOT OTHERWISE SPECIFIED).
     Route: 042
     Dates: start: 20070205, end: 20070206
  6. PANSPORIN [Concomitant]
     Dosage: DRUG WAS REPORTED AS PANSPORIN:KIT. ROUTE WAS REPORTED AS INTRAVENOUS (NOT OTHERWISE SPECIFIED).
     Route: 042
     Dates: start: 20070205, end: 20070206
  7. BIO-THREE [Concomitant]
     Route: 048
     Dates: start: 20070206, end: 20070211
  8. TANNALBIN [Concomitant]
     Route: 048
     Dates: start: 20070206, end: 20070211
  9. THIATON [Concomitant]
     Route: 048
     Dates: start: 20070206, end: 20070211

REACTIONS (1)
  - LEUKOPENIA [None]
